FAERS Safety Report 15868567 (Version 2)
Quarter: 2019Q2

REPORT INFORMATION
  Report Type: Spontaneous
  Country: US (occurrence: US)
  Receive Date: 20190125
  Receipt Date: 20190613
  Transmission Date: 20190711
  Serious: Yes (Hospitalization)
  Sender: FDA-Public Use
  Company Number: US-TAIHO ONCOLOGY  INC-EU-2018-01733

PATIENT
  Sex: Male
  Weight: 45.4 kg

DRUGS (2)
  1. LONSURF [Suspect]
     Active Substance: TIPIRACIL HYDROCHLORIDE\TRIFLURIDINE
     Indication: COLON CANCER
     Dosage: CURRENT CYCLE 12
     Route: 048
     Dates: start: 20180319
  2. LONSURF [Suspect]
     Active Substance: TIPIRACIL HYDROCHLORIDE\TRIFLURIDINE
     Indication: RECTAL CANCER

REACTIONS (5)
  - Nausea [Unknown]
  - Gastrointestinal stoma complication [Unknown]
  - Abdominal pain [Unknown]
  - Vomiting [Unknown]
  - Burning sensation [Unknown]

NARRATIVE: CASE EVENT DATE: 2018
